FAERS Safety Report 6844145-5 (Version None)
Quarter: 2010Q3

REPORT INFORMATION
  Report Type: 
  Country: None (occurrence: None)
  Receive Date: 20100715
  Receipt Date: 20100707
  Transmission Date: 20110219
  Serious: Yes (Life-Threatening, Other)
  Sender: FDA-Public Use
  Company Number: A0865280A

PATIENT
  Age: 86 Year
  Sex: Female
  Weight: 62.7 kg

DRUGS (12)
  1. ARIXTRA [Suspect]
     Indication: DEEP VEIN THROMBOSIS
     Route: 065
  2. BENICAR [Suspect]
     Indication: PRODUCT USED FOR UNKNOWN INDICATION
     Dosage: 40MG PER DAY
     Route: 048
     Dates: end: 20100613
  3. OTHER MEDICATIONS [Concomitant]
  4. METFORMIN HCL [Concomitant]
     Dosage: 500MG TWICE PER DAY
     Route: 048
  5. VITAMIN D [Concomitant]
     Route: 048
  6. METOPROLOL [Concomitant]
     Dosage: 100MG TWICE PER DAY
     Route: 048
  7. ASPIRIN [Concomitant]
     Dosage: 81MG PER DAY
     Route: 048
  8. FISH OIL [Concomitant]
     Dosage: 1200MG PER DAY
     Route: 048
  9. LOVASTATIN [Concomitant]
     Dosage: 40MG PER DAY
     Route: 048
  10. LEXAPRO [Concomitant]
     Dosage: 5MG AS REQUIRED
     Route: 048
  11. UNSPECIFIED MEDICATION [Concomitant]
     Dosage: 5MG TWICE PER DAY
     Route: 048
  12. DYAZIDE [Concomitant]
     Dosage: 1CAP PER DAY
     Route: 048

REACTIONS (2)
  - ANGIOEDEMA [None]
  - LARYNGEAL OEDEMA [None]
